FAERS Safety Report 19169050 (Version 3)
Quarter: 2021Q2

REPORT INFORMATION
  Report Type: Spontaneous
  Country: US (occurrence: US)
  Receive Date: 20210422
  Receipt Date: 20210628
  Transmission Date: 20210717
  Serious: Yes (Other)
  Sender: FDA-Public Use
  Company Number: US-ASTRAZENECA-2021A337422

PATIENT
  Age: 29 Year
  Sex: Female

DRUGS (9)
  1. CITALOPRAM [Concomitant]
     Active Substance: CITALOPRAM HYDROBROMIDE
  2. OLAPARIB. [Suspect]
     Active Substance: OLAPARIB
     Indication: OVARIAN CANCER STAGE II
     Route: 048
     Dates: start: 202005
  3. OLAPARIB. [Suspect]
     Active Substance: OLAPARIB
     Indication: OVARIAN CANCER STAGE II
     Route: 048
     Dates: start: 202003, end: 2020
  4. OLAPARIB. [Suspect]
     Active Substance: OLAPARIB
     Indication: OVARIAN CANCER STAGE II
     Route: 048
  5. METFORMIN [Concomitant]
     Active Substance: METFORMIN HYDROCHLORIDE
  6. ZOFRAN [Concomitant]
     Active Substance: ONDANSETRON HYDROCHLORIDE
     Indication: NAUSEA
  7. LEVOTHYROXINE. [Concomitant]
     Active Substance: LEVOTHYROXINE
  8. OLAPARIB. [Suspect]
     Active Substance: OLAPARIB
     Indication: OVARIAN CANCER STAGE II
     Dosage: 150MG IN THE MORNING AND 100MG AT NIGHT
     Route: 048
  9. ESTRADIOL. [Concomitant]
     Active Substance: ESTRADIOL

REACTIONS (23)
  - Blood glucose increased [Recovered/Resolved]
  - Diabetes mellitus [Unknown]
  - Myalgia [Unknown]
  - Cancer gene carrier [Unknown]
  - Cholelithiasis [Unknown]
  - Feeling abnormal [Unknown]
  - Pollakiuria [Unknown]
  - Decreased appetite [Unknown]
  - Infection susceptibility increased [Not Recovered/Not Resolved]
  - Depressed mood [Unknown]
  - Urinary tract infection [Unknown]
  - Nausea [Unknown]
  - Vomiting [Unknown]
  - Weight decreased [Unknown]
  - Mastectomy [Recovered/Resolved]
  - Somnolence [Not Recovered/Not Resolved]
  - Ureterolithiasis [Unknown]
  - Fatigue [Not Recovered/Not Resolved]
  - Intentional product misuse [Unknown]
  - Axillary mass [Unknown]
  - Apathy [Not Recovered/Not Resolved]
  - Kidney infection [Recovered/Resolved]
  - Malaise [Unknown]

NARRATIVE: CASE EVENT DATE: 2020
